FAERS Safety Report 19808100 (Version 1)
Quarter: 2021Q3

REPORT INFORMATION
  Report Type: Report from Study
  Country: US (occurrence: US)
  Receive Date: 20210908
  Receipt Date: 20210908
  Transmission Date: 20211014
  Serious: Yes (Death, Hospitalization)
  Sender: FDA-Public Use
  Company Number: US-ROCHE-2902388

PATIENT
  Age: 53 Year
  Sex: Female

DRUGS (16)
  1. CLONAZEPAM. [Concomitant]
     Active Substance: CLONAZEPAM
     Indication: ANXIETY
  2. COZAAR [Concomitant]
     Active Substance: LOSARTAN POTASSIUM
     Route: 048
  3. VANCOMYCIN [Concomitant]
     Active Substance: VANCOMYCIN
     Route: 042
  4. SODIUM CHLORIDE. [Concomitant]
     Active Substance: SODIUM CHLORIDE
     Route: 042
  5. ZYPREXA [Concomitant]
     Active Substance: OLANZAPINE
     Indication: ANXIETY
     Route: 048
  6. TOBRAMYCINE [Concomitant]
     Active Substance: TOBRAMYCIN SULFATE
     Route: 042
  7. CREON [Concomitant]
     Active Substance: PANCRELIPASE AMYLASE\PANCRELIPASE LIPASE\PANCRELIPASE PROTEASE
     Dosage: 36000 UNITS
     Route: 048
  8. REMERON [Concomitant]
     Active Substance: MIRTAZAPINE
     Indication: SINUS TACHYCARDIA
     Route: 048
  9. COBIMETINIB. [Suspect]
     Active Substance: COBIMETINIB
     Indication: PANCREATIC CARCINOMA METASTATIC
     Route: 048
     Dates: start: 20210719
  10. HYDROXYCHLOROQUINE [Suspect]
     Active Substance: HYDROXYCHLOROQUINE
     Indication: PANCREATIC CARCINOMA METASTATIC
     Route: 048
     Dates: start: 20210719
  11. LOVENOX [Concomitant]
     Active Substance: ENOXAPARIN SODIUM
     Dosage: UNDER SKIN DAILY
  12. ROXICODONE [Concomitant]
     Active Substance: OXYCODONE HYDROCHLORIDE
     Indication: PAIN
     Route: 048
  13. COMPAZINE [Concomitant]
     Active Substance: PROCHLORPERAZINE MALEATE
     Indication: NAUSEA
     Route: 048
  14. FOLVITE [Concomitant]
     Active Substance: FOLIC ACID
     Dates: start: 20210606, end: 20210812
  15. ZOFRAN [Concomitant]
     Active Substance: ONDANSETRON HYDROCHLORIDE
     Indication: NAUSEA
     Route: 048
  16. TOPROL XL [Concomitant]
     Active Substance: METOPROLOL SUCCINATE
     Route: 048

REACTIONS (2)
  - Cerebrovascular accident [Recovered/Resolved]
  - Confusional state [Not Recovered/Not Resolved]

NARRATIVE: CASE EVENT DATE: 20210813
